FAERS Safety Report 9695373 (Version 1)
Quarter: 2013Q4

REPORT INFORMATION
  Report Type: Spontaneous
  Country: US (occurrence: None)
  Receive Date: 20131118
  Receipt Date: 20131118
  Transmission Date: 20140711
  Serious: Yes (Hospitalization)
  Sender: FDA-Public Use
  Company Number: None

PATIENT
  Age: 59 Year
  Sex: Female
  Weight: 95 kg

DRUGS (1)
  1. ENALAPRIL [Suspect]
     Route: 048

REACTIONS (1)
  - Lip swelling [None]
